FAERS Safety Report 11079407 (Version 1)
Quarter: 2015Q2

REPORT INFORMATION
  Report Type: Spontaneous
  Country: BR (occurrence: BR)
  Receive Date: 20150430
  Receipt Date: 20150430
  Transmission Date: 20150821
  Serious: Yes (Other)
  Sender: FDA-Public Use
  Company Number: BR-GLAXOSMITHKLINE INC.-BR2015GSK057167

PATIENT
  Age: 14 Year
  Sex: Male
  Weight: 53 kg

DRUGS (6)
  1. AEROLIN [Suspect]
     Active Substance: ALBUTEROL
     Indication: ASTHMA
     Dosage: UNK
     Route: 055
     Dates: start: 20150420, end: 20150422
  2. NOVALGINA (DIPYRONE) [Concomitant]
     Indication: PYREXIA
  3. SERETIDE [Suspect]
     Active Substance: FLUTICASONE FUROATE\SALMETEROL XINAFOATE
     Indication: ASTHMA
     Dosage: UNK
     Route: 055
  4. NOVALGINA (DIPYRONE) [Concomitant]
     Indication: PAIN
     Dosage: 1 UNK, TID
     Dates: start: 20150420
  5. RINOSORO [Concomitant]
     Indication: NASAL DISCOMFORT
     Dosage: UNK
  6. PREDSIM (PREDNISOLONE) [Concomitant]
     Indication: ASTHMA
     Dosage: 1 UNK, UNK
     Dates: start: 20150420

REACTIONS (7)
  - Chest pain [Recovering/Resolving]
  - Skin exfoliation [Not Recovered/Not Resolved]
  - Asthmatic crisis [Recovered/Resolved]
  - Tachycardia [Recovering/Resolving]
  - Dyspnoea [Recovering/Resolving]
  - Muscle spasms [Recovering/Resolving]
  - Drug ineffective [Not Recovered/Not Resolved]

NARRATIVE: CASE EVENT DATE: 20150420
